FAERS Safety Report 7396632-1 (Version None)
Quarter: 2011Q1

REPORT INFORMATION
  Report Type: 
  Country: None (occurrence: None)
  Receive Date: 20110325
  Receipt Date: 20110309
  Transmission Date: 20110831
  Serious: Yes (Other)
  Sender: FDA-Public Use
  Company Number: 2011-00311

PATIENT
  Age: 49 Year
  Sex: Female
  Weight: 92.9874 kg

DRUGS (9)
  1. METOPROLOL TAB [Concomitant]
  2. APIRIN TAB [Concomitant]
  3. CEFUROXIME AXETIL [Suspect]
     Indication: INFECTION
     Dosage: 1000 MG (500 MG, 2 IN 1 D), ORAL
     Route: 048
     Dates: start: 20110210, end: 20110220
  4. EFFEXOR XR TAB [Concomitant]
  5. TESSALON PEARLES [Concomitant]
  6. MYCOPHENOLATE MEFETIL [Concomitant]
  7. DIOVAN TABLET [Concomitant]
  8. PROAIR HFA (INHALANT) [Concomitant]
  9. CENTRUM TAB [Concomitant]

REACTIONS (5)
  - DIARRHOEA [None]
  - BURNING SENSATION [None]
  - RECTAL HAEMORRHAGE [None]
  - BACTERIAL TEST POSITIVE [None]
  - GAIT DISTURBANCE [None]
